FAERS Safety Report 9969721 (Version 1)
Quarter: 2014Q1

REPORT INFORMATION
  Report Type: Spontaneous
  Country: US (occurrence: US)
  Receive Date: 20140306
  Receipt Date: 20140306
  Transmission Date: 20141002
  Serious: No
  Sender: FDA-Public Use
  Company Number: US-B.I. PHARMACEUTICALS,INC./RIDGEFIELD-2014-BI-08077BP

PATIENT
  Age: 48 Year
  Sex: Female

DRUGS (9)
  1. MIRAPEX [Suspect]
     Indication: RESTLESS LEGS SYNDROME
     Dosage: 0.25 MG
     Route: 048
     Dates: start: 201312, end: 201401
  2. MIRAPEX [Suspect]
     Dosage: 0.5 MG
     Route: 048
     Dates: start: 201401, end: 201401
  3. MIRAPEX [Suspect]
     Dosage: 3 MG
     Route: 048
     Dates: start: 20140116, end: 20140127
  4. MIRAPEX [Suspect]
     Dosage: 0.5 MG
     Route: 048
     Dates: start: 20140127, end: 20140209
  5. GABAPENTIN [Concomitant]
     Indication: FIBROMYALGIA
     Dosage: 900 MG
     Route: 048
  6. TOPAMAX [Concomitant]
     Indication: MIGRAINE
     Dosage: 200 MG
     Route: 048
  7. MELOXICAM [Concomitant]
     Indication: ARTHRITIS
     Dosage: 15 MG
     Route: 048
  8. ATENOLOL [Concomitant]
     Indication: HYPERTENSION
     Dosage: 50 MG
     Route: 048
  9. SYNTHROID [Concomitant]
     Indication: HYPOTHYROIDISM
     Dosage: 50 MG
     Route: 048

REACTIONS (13)
  - Migraine [Recovered/Resolved]
  - Narcolepsy [Not Recovered/Not Resolved]
  - Speech disorder [Recovered/Resolved]
  - Dysstasia [Recovered/Resolved]
  - Vision blurred [Recovered/Resolved]
  - Headache [Recovered/Resolved]
  - Unevaluable event [Recovered/Resolved]
  - Mental impairment [Recovered/Resolved]
  - Disorientation [Recovered/Resolved]
  - Palpitations [Recovered/Resolved]
  - Balance disorder [Recovered/Resolved]
  - Disturbance in attention [Recovered/Resolved]
  - Prescribed overdose [Recovered/Resolved]
